FAERS Safety Report 7516179-9 (Version None)
Quarter: 2011Q2

REPORT INFORMATION
  Report Type: 
  Country: None (occurrence: None)
  Receive Date: 20110601
  Receipt Date: 20110523
  Transmission Date: 20111010
  Serious: Yes (Hospitalization)
  Sender: FDA-Public Use
  Company Number: FR-JNJFOC-20110510772

PATIENT
  Age: 55 Year
  Sex: Male

DRUGS (16)
  1. LEVOFLOXACIN [Suspect]
     Indication: LUNG DISORDER
     Route: 048
     Dates: start: 20101214, end: 20101217
  2. ZOCOR [Concomitant]
     Route: 065
  3. PLAVIX [Concomitant]
     Route: 065
     Dates: start: 20101204
  4. IRBESARTAN [Concomitant]
     Route: 065
  5. UVEDOSE [Concomitant]
     Route: 065
  6. UN-ALFA [Concomitant]
     Route: 065
  7. PREDNISOLONE [Concomitant]
     Route: 065
  8. AMLODIPINE BESYLATE [Concomitant]
     Route: 065
  9. CELLCEPT [Concomitant]
     Route: 065
  10. ASPIRIN [Concomitant]
     Route: 065
     Dates: start: 20101204
  11. BISOPROLOL FUMARATE [Concomitant]
     Route: 065
     Dates: start: 20101204
  12. ESOMEPRAZOLE MAGNESIUM [Concomitant]
     Route: 065
     Dates: start: 20101204, end: 20101223
  13. ARANESP [Concomitant]
     Route: 065
  14. HEPARIN CALCIUM [Concomitant]
     Route: 065
     Dates: start: 20101204
  15. RAPAMUNE [Concomitant]
     Route: 065
  16. ALLOPURINOL [Concomitant]
     Route: 065

REACTIONS (6)
  - DERMATITIS EXFOLIATIVE [None]
  - EOSINOPHILIA [None]
  - EPSTEIN-BARR VIRUS INFECTION [None]
  - TOXIC SKIN ERUPTION [None]
  - VASCULAR PURPURA [None]
  - PYREXIA [None]
